FAERS Safety Report 25331301 (Version 1)
Quarter: 2025Q2

REPORT INFORMATION
  Report Type: Report from Study
  Country: US (occurrence: US)
  Receive Date: 20250519
  Receipt Date: 20250519
  Transmission Date: 20250716
  Serious: Yes (Hospitalization)
  Sender: VERONA PHARMA
  Company Number: US-VERONA PHARMA-VER-004766

PATIENT
  Sex: Male

DRUGS (1)
  1. OHTUVAYRE [Suspect]
     Active Substance: ENSIFENTRINE
     Indication: Product used for unknown indication
     Dates: start: 20241210

REACTIONS (1)
  - Chronic obstructive pulmonary disease [Unknown]
